FAERS Safety Report 7402126-7 (Version None)
Quarter: 2011Q1

REPORT INFORMATION
  Report Type: 
  Country: None (occurrence: None)
  Receive Date: 20110330
  Receipt Date: 20110315
  Transmission Date: 20110831
  Serious: No
  Sender: FDA-Public Use
  Company Number: 2011AP000318

PATIENT
  Age: 1 Month
  Sex: Female

DRUGS (5)
  1. OMEPRAZOLE [Suspect]
     Dosage: 20 MG; TRPL;QD
     Route: 064
     Dates: start: 20081016
  2. FOLIC ACID [Suspect]
     Dosage: 1 DF; TRPL; QD
     Route: 064
     Dates: start: 20090501
  3. HYDROXOCOBALAMIN [Suspect]
     Dosage: 3 DF; TRPL;QM
     Route: 064
     Dates: start: 20091216
  4. CO-CODAMAL (PANADEINE CO) [Suspect]
     Dosage: 2 DF; TRPL
     Route: 064
     Dates: start: 20090106
  5. LYRICA [Suspect]
     Dosage: 2 DFL TRPL;BID
     Route: 064
     Dates: start: 20080815

REACTIONS (4)
  - DRUG EXPOSURE DURING PREGNANCY [None]
  - HIP DYSPLASIA [None]
  - PELVIC DEFORMITY [None]
  - FORCEPS DELIVERY [None]
